FAERS Safety Report 8696618 (Version 2)
Quarter: 2012Q4

REPORT INFORMATION
  Report Type: 
  Country: US (occurrence: US)
  Receive Date: 20120801
  Receipt Date: 20121221
  Transmission Date: 20130627
  Serious: Yes (Hospitalization)
  Sender: FDA-Public Use
  Company Number: US-BAYER-2012-074331

PATIENT
  Age: 17 Year
  Sex: Female
  Weight: 99.77 kg

DRUGS (11)
  1. YAZ [Suspect]
     Indication: ACNE
     Dosage: UNK
     Dates: start: 200806, end: 200903
  2. YAZ [Suspect]
     Indication: CONTRACEPTION
  3. YASMIN [Suspect]
     Indication: CONTRACEPTION
     Dosage: UNK
     Dates: start: 200903
  4. RANITIDINE [Concomitant]
     Dosage: 300 mg, UNK
     Route: 048
  5. GLUCOPHAGE [Concomitant]
     Indication: POLYCYSTIC OVARIAN SYNDROME
     Route: 048
  6. SPIRONOLACTONE [Concomitant]
     Indication: POLYCYSTIC OVARIAN SYNDROME
     Route: 048
  7. IRON [FERROUS SULFATE] [Concomitant]
     Route: 048
  8. LEVAQUIN [Concomitant]
     Dosage: 500 mg, UNK
  9. PHENERGAN [Concomitant]
     Indication: NAUSEA
  10. PERCOCET [Concomitant]
     Indication: PAIN
  11. DILAUDID [Concomitant]
     Indication: PAIN

REACTIONS (5)
  - Cholelithiasis [None]
  - Cholecystitis chronic [None]
  - Injury [None]
  - Pain [None]
  - Pain [None]
